FAERS Safety Report 26180310 (Version 2)
Quarter: 2025Q4

REPORT INFORMATION
  Report Type: Spontaneous
  Country: EU (occurrence: EU)
  Receive Date: 20251219
  Receipt Date: 20251223
  Transmission Date: 20260117
  Serious: Yes (Other)
  Sender: PFIZER
  Company Number: None

PATIENT
  Age: 55 Year
  Sex: Female
  Weight: 78 kg

DRUGS (6)
  1. METHOTREXATE SODIUM [Suspect]
     Active Substance: METHOTREXATE SODIUM
     Indication: Psoriasis
     Dosage: 15 MG, WEEKLY
     Route: 048
     Dates: start: 20240920
  2. ELIQUIS [Suspect]
     Active Substance: APIXABAN
     Indication: Thrombosis
     Dosage: 5 MG, 2X/DAY; FREQ:12 H
     Route: 048
     Dates: start: 20220329
  3. METHOTREXATE SODIUM [Suspect]
     Active Substance: METHOTREXATE SODIUM
     Indication: Psoriasis
     Dosage: 15 MG, WEEKLY
     Route: 058
     Dates: start: 2017, end: 20240920
  4. RINVOQ [Suspect]
     Active Substance: UPADACITINIB
     Indication: Psoriasis
     Dosage: 15 MG, 1X/DAY
     Route: 048
     Dates: start: 20211221
  5. PROPRANOLOL [Concomitant]
     Active Substance: PROPRANOLOL HYDROCHLORIDE
     Indication: Sinus tachycardia
     Dosage: 20 MG, 2X/DAY; FREQ:12 H
     Route: 048
  6. FOLIC ACID [Concomitant]
     Active Substance: FOLIC ACID
     Indication: Drug toxicity prophylaxis
     Dosage: 1 DF, WEEKLY
     Route: 048

REACTIONS (1)
  - Myelocytosis [Recovered/Resolved]

NARRATIVE: CASE EVENT DATE: 20240425
